FAERS Safety Report 9526629 (Version 3)
Quarter: 2013Q3

REPORT INFORMATION
  Report Type: Spontaneous
  Country: JP (occurrence: JP)
  Receive Date: 20130916
  Receipt Date: 20130928
  Transmission Date: 20140515
  Serious: Yes (Hospitalization, Disabling, Other)
  Sender: FDA-Public Use
  Company Number: JP-BAYER-2013-108901

PATIENT
  Age: 69 Year
  Sex: Male
  Weight: 53 kg

DRUGS (6)
  1. NEXAVAR [Suspect]
     Indication: HEPATOCELLULAR CARCINOMA
     Dosage: 400 MG, BID
     Route: 048
     Dates: start: 20130830, end: 20130905
  2. MAGMITT [Concomitant]
     Dosage: DAILY DOSE 6 DF
     Route: 048
  3. URSO [Concomitant]
     Dosage: DAILY DOSE 6 DF
     Route: 048
  4. LENDORMIN [Concomitant]
     Dosage: DAILY DOSE 1 DF
     Route: 048
  5. LOXONIN [Concomitant]
     Dosage: DAILY DOSE 1 DF
     Route: 048
  6. SELBEX [Concomitant]
     Dosage: DAILY DOSE 1 DF
     Route: 048

REACTIONS (5)
  - Hepatic encephalopathy [Recovered/Resolved with Sequelae]
  - Blood bilirubin unconjugated increased [Unknown]
  - Hypertension [Unknown]
  - Skull fracture [None]
  - Subarachnoid haemorrhage [Recovered/Resolved]
